FAERS Safety Report 10080089 (Version 4)
Quarter: 2015Q1

REPORT INFORMATION
  Report Type: Report from Study
  Country: US (occurrence: US)
  Receive Date: 20140415
  Receipt Date: 20150318
  Transmission Date: 20150720
  Serious: Yes (Hospitalization, Other)
  Sender: FDA-Public Use
  Company Number: US-SA-2014SA042179

PATIENT
  Age: 16 Year
  Sex: Female

DRUGS (1)
  1. AUBAGIO [Suspect]
     Active Substance: TERIFLUNOMIDE
     Indication: MULTIPLE SCLEROSIS
     Route: 048
     Dates: start: 20140318, end: 20140501

REACTIONS (6)
  - Ovarian neoplasm [Not Recovered/Not Resolved]
  - Multiple sclerosis relapse [Unknown]
  - Fall [Unknown]
  - Muscular weakness [Unknown]
  - Gait disturbance [Unknown]
  - Aphasia [Unknown]

NARRATIVE: CASE EVENT DATE: 20140326
